FAERS Safety Report 24716829 (Version 3)
Quarter: 2025Q3

REPORT INFORMATION
  Report Type: Report from Study
  Country: US (occurrence: US)
  Receive Date: 20241210
  Receipt Date: 20250902
  Transmission Date: 20251020
  Serious: Yes (Other)
  Sender: JAZZ
  Company Number: US-JAZZ PHARMACEUTICALS-2024-US-023052

PATIENT
  Sex: Female

DRUGS (7)
  1. SODIUM OXYBATE [Suspect]
     Active Substance: SODIUM OXYBATE
     Indication: Narcolepsy
     Dosage: 3.75 GRAM, BID
  2. SODIUM OXYBATE [Suspect]
     Active Substance: SODIUM OXYBATE
     Indication: Cataplexy
  3. SODIUM OXYBATE [Suspect]
     Active Substance: SODIUM OXYBATE
     Indication: Somnolence
  4. KETAMINE HYDROCHLORIDE [Concomitant]
     Active Substance: KETAMINE HYDROCHLORIDE
     Indication: Product used for unknown indication
  5. LORAZEPAM [Concomitant]
     Active Substance: LORAZEPAM
     Indication: Product used for unknown indication
  6. TESTOSTERONE CYPIONATE [Concomitant]
     Active Substance: TESTOSTERONE CYPIONATE
     Indication: Product used for unknown indication
  7. FOSTEUM PLUS [Concomitant]
     Indication: Osteoporosis

REACTIONS (5)
  - Neuropathy peripheral [Unknown]
  - Gastritis [Unknown]
  - Bronchitis [Recovered/Resolved]
  - Ear inflammation [Unknown]
  - Pre-existing condition improved [Unknown]
